FAERS Safety Report 9325037 (Version 1)
Quarter: 2013Q2

REPORT INFORMATION
  Report Type: Spontaneous
  Country: GB (occurrence: None)
  Receive Date: 20130530
  Receipt Date: 20130530
  Transmission Date: 20140414
  Serious: Yes (Hospitalization)
  Sender: FDA-Public Use
  Company Number: THQ2013A03980

PATIENT
  Age: 58 Year
  Sex: Male

DRUGS (4)
  1. LANSOPRAZOLE (LANSOPRAZOLE) [Suspect]
     Indication: GASTROOESOPHAGEAL REFLUX DISEASE
     Dosage: 15 MG (15 MG, 1 -2 D)
     Route: 048
  2. GOLIMUMAB [Suspect]
     Indication: PSORIATIC ARTHROPATHY
     Dosage: 50 MG (50 MG 1 -1 M)
     Route: 058
     Dates: start: 201207
  3. ARCOXIA [Suspect]
     Indication: PSORIATIC ARTHROPATHY
     Dosage: (50 MG, 1 IN 1 D)
     Route: 048
  4. CO-CODAMOL [Suspect]
     Indication: PSORIATIC ARTHROPATHY
     Route: 048

REACTIONS (1)
  - Allodynia [None]
